FAERS Safety Report 18705499 (Version 1)
Quarter: 2021Q1

REPORT INFORMATION
  Report Type: Spontaneous
  Country: ES (occurrence: ES)
  Receive Date: 20210103
  Receipt Date: 20210103
  Transmission Date: 20210419
  Serious: Yes (Other)
  Sender: FDA-Public Use
  Company Number: None

PATIENT
  Age: 67 Year
  Sex: Male
  Weight: 90 kg

DRUGS (13)
  1. COLUTORIO LACER CLORHEXIDINA [Suspect]
     Active Substance: CHLORHEXIDINE GLUCONATE
  2. LISTERINE ANTISEPTIC MOUTHWASH [Suspect]
     Active Substance: EUCALYPTOL\MENTHOL\METHYL SALICYLATE\THYMOL
  3. VITAMIN D [Concomitant]
     Active Substance: VITAMIN D NOS
  4. TOOTHPASTE [Concomitant]
     Active Substance: UNSPECIFIED INGREDIENT
  5. BETA BLOCKES [Concomitant]
  6. MOUTH WASHES [Suspect]
     Active Substance: UNSPECIFIED INGREDIENT
  7. SOAPS [Concomitant]
  8. SUNSCREENS [Concomitant]
  9. SHAMPOOS [Concomitant]
     Active Substance: UNSPECIFIED INGREDIENT
  10. HEAD AND SHOULDERS CLINICAL STRENGTH [Suspect]
     Active Substance: SELENIUM SULFIDE
  11. APOSITO VERSATIS [Suspect]
     Active Substance: LIDOCAINE
  12. OMEPRAZOLE. [Concomitant]
     Active Substance: OMEPRAZOLE
  13. INSECT REPELLENTS [Concomitant]

REACTIONS (3)
  - Stomatitis [None]
  - Dermatitis [None]
  - Documented hypersensitivity to administered product [None]

NARRATIVE: CASE EVENT DATE: 20121212
